FAERS Safety Report 5815174-5 (Version None)
Quarter: 2008Q3

REPORT INFORMATION
  Report Type: 
  Country: None (occurrence: None)
  Receive Date: 20080718
  Receipt Date: 20080709
  Transmission Date: 20090109
  Serious: Yes (Hospitalization)
  Sender: FDA-Public Use
  Company Number: FR-ROCHE-575399

PATIENT
  Sex: Female

DRUGS (6)
  1. ROCEPHIN [Suspect]
     Indication: DRUG USE FOR UNKNOWN INDICATION
     Dosage: TAKEN DAILY.  FORM: INJECTABLE SOLUTION
     Route: 042
     Dates: start: 20080507, end: 20080522
  2. GENTAMICIN [Suspect]
     Indication: DRUG USE FOR UNKNOWN INDICATION
     Dosage: DRUG: GENTAMICINE PANPHARMA 80  TAKEN DAILY.  FORM: INJECTABLE SOLUTION
     Route: 042
     Dates: start: 20080507, end: 20080511
  3. TRIFLUCAN [Concomitant]
     Dates: start: 20080409
  4. TRIFLUCAN [Concomitant]
     Dates: start: 20080516
  5. TRIFLUCAN [Concomitant]
     Dates: start: 20080518
  6. AUGMENTIN '125' [Concomitant]
     Dates: start: 20080404

REACTIONS (1)
  - RENAL FAILURE [None]
